FAERS Safety Report 12173990 (Version 1)
Quarter: 2016Q1

REPORT INFORMATION
  Report Type: Spontaneous
  Country: IT (occurrence: IT)
  Receive Date: 20160314
  Receipt Date: 20160314
  Transmission Date: 20160526
  Serious: Yes (Death, Other)
  Sender: FDA-Public Use
  Company Number: IT-HOSPIRA-3201775

PATIENT
  Age: 64 Year
  Sex: Male

DRUGS (3)
  1. PHENOBARBITAL. [Suspect]
     Active Substance: PHENOBARBITAL
     Indication: SEIZURE
  2. LEVETIRACETAM. [Suspect]
     Active Substance: LEVETIRACETAM
     Indication: SEIZURE
     Dosage: UP TO 3000 MG/DAY
  3. PREGABALIN. [Suspect]
     Active Substance: PREGABALIN
     Indication: SEIZURE
     Dosage: UP TO 150 MG

REACTIONS (3)
  - Acute hepatic failure [Fatal]
  - Hepatic encephalopathy [Recovered/Resolved]
  - Drug interaction [Recovered/Resolved]
